FAERS Safety Report 5834440-0 (Version None)
Quarter: 2008Q3

REPORT INFORMATION
  Report Type: 
  Country: None (occurrence: None)
  Receive Date: 20080805
  Receipt Date: 20080730
  Transmission Date: 20090109
  Serious: Yes (Hospitalization, Other)
  Sender: FDA-Public Use
  Company Number: US-BOEHRINGER INGELHEIM GMBH, GERMANY-2008-BP-11926RO

PATIENT
  Age: 92 Year
  Sex: Male

DRUGS (4)
  1. PREDNISONE TAB [Suspect]
     Indication: HERPES ZOSTER
  2. ACYCLOVIR [Suspect]
     Indication: HERPES ZOSTER
  3. ANTIBIOTICS [Suspect]
     Indication: HERPES ZOSTER
  4. ACYCLOVIR [Concomitant]
     Indication: ENCEPHALITIS HERPES
     Route: 042

REACTIONS (9)
  - CEREBRAL ISCHAEMIA [None]
  - DELIRIUM [None]
  - DYSPHAGIA [None]
  - ENCEPHALITIS HERPES [None]
  - HERPES SIMPLEX SEROLOGY POSITIVE [None]
  - HERPES ZOSTER OPHTHALMIC [None]
  - INCONTINENCE [None]
  - NEURODEGENERATIVE DISORDER [None]
  - XANTHOCHROMIA [None]
